FAERS Safety Report 8478928-5 (Version None)
Quarter: 2012Q2

REPORT INFORMATION
  Report Type: 
  Country: None (occurrence: None)
  Receive Date: 20120629
  Receipt Date: 20120622
  Transmission Date: 20120825
  Serious: Yes (Hospitalization)
  Sender: FDA-Public Use
  Company Number: US-TEVA-345150USA

PATIENT
  Age: 76 Year
  Sex: Male
  Weight: 98.3 kg

DRUGS (2)
  1. DAUNORUBICIN HCL [Suspect]
     Dates: start: 20120326
  2. CYTARABINE [Suspect]
     Dates: start: 20120330

REACTIONS (3)
  - SINUSITIS [None]
  - CELLULITIS [None]
  - ATRIAL FIBRILLATION [None]
